FAERS Safety Report 9828716 (Version 3)
Quarter: 2014Q2

REPORT INFORMATION
  Report Type: Report from Study
  Country: US (occurrence: US)
  Receive Date: 20140117
  Receipt Date: 20140410
  Transmission Date: 20141212
  Serious: Yes (Death, Hospitalization, Other)
  Sender: FDA-Public Use
  Company Number: US-ACTELION-A-US2014-93529

PATIENT
  Age: 68 Year
  Sex: Female

DRUGS (1)
  1. TRACLEER [Suspect]
     Indication: PULMONARY ARTERIAL HYPERTENSION
     Dosage: UNK
     Route: 048

REACTIONS (6)
  - Death [Fatal]
  - Dialysis [Recovering/Resolving]
  - Gastrointestinal disorder [Recovering/Resolving]
  - Fluid overload [Recovering/Resolving]
  - Dyspnoea [Recovering/Resolving]
  - Medication error [Unknown]
